FAERS Safety Report 7765799-5 (Version None)
Quarter: 2011Q3

REPORT INFORMATION
  Report Type: 
  Country: None (occurrence: None)
  Receive Date: 20110921
  Receipt Date: 20110912
  Transmission Date: 20111222
  Serious: Yes (Hospitalization)
  Sender: FDA-Public Use
  Company Number: JP-JNJFOC-20110407014

PATIENT
  Age: 45 Year
  Sex: Male
  Weight: 60 kg

DRUGS (21)
  1. PREDNISOLONE [Concomitant]
     Route: 048
     Dates: start: 20101201, end: 20101213
  2. PREDNISOLONE [Concomitant]
     Route: 048
     Dates: start: 20110422, end: 20110501
  3. PREDNISOLONE [Concomitant]
     Dosage: ROUTE: INTRAVENOUS FROM 04-APR TO 15-APR-2011
     Route: 048
     Dates: start: 20110404, end: 20110406
  4. REMICADE [Suspect]
     Indication: COLITIS ULCERATIVE
     Route: 042
     Dates: start: 20101105
  5. PREDNISOLONE [Concomitant]
     Indication: COLITIS ULCERATIVE
     Route: 048
     Dates: end: 20101115
  6. PREDNISOLONE [Concomitant]
     Route: 048
     Dates: start: 20110512, end: 20110602
  7. FAMOTIDINE [Concomitant]
     Indication: PROPHYLAXIS
     Route: 048
     Dates: end: 20110110
  8. REMICADE [Suspect]
     Route: 042
     Dates: start: 20110222
  9. PENTASA [Concomitant]
     Indication: COLITIS ULCERATIVE
     Route: 048
  10. PREDNISOLONE [Concomitant]
     Route: 048
     Dates: start: 20110413, end: 20110415
  11. AMARYL [Concomitant]
     Indication: DIABETES MELLITUS
     Route: 048
     Dates: start: 20110111
  12. FAMOTIDINE [Concomitant]
     Route: 048
     Dates: start: 20110111
  13. REMICADE [Suspect]
     Route: 042
     Dates: start: 20101214, end: 20110115
  14. REMICADE [Suspect]
     Route: 042
     Dates: start: 20101116
  15. PREDNISOLONE [Concomitant]
     Route: 048
     Dates: start: 20110502, end: 20110505
  16. PREDNISOLONE [Concomitant]
     Route: 048
     Dates: start: 20110407, end: 20110409
  17. PREDNISOLONE [Concomitant]
     Route: 048
     Dates: start: 20110506, end: 20110511
  18. PREDNISOLONE [Concomitant]
     Route: 048
     Dates: start: 20101116, end: 20101130
  19. PREDNISOLONE [Concomitant]
     Route: 048
     Dates: start: 20101214, end: 20101227
  20. AMARYL [Concomitant]
     Route: 048
     Dates: end: 20110110
  21. SOLU-MEDROL [Concomitant]
     Indication: COLITIS ULCERATIVE
     Route: 042
     Dates: start: 20110401, end: 20110421

REACTIONS (1)
  - MONONEUROPATHY MULTIPLEX [None]
